FAERS Safety Report 6851872-2 (Version None)
Quarter: 2010Q3

REPORT INFORMATION
  Report Type: 
  Country: None (occurrence: None)
  Receive Date: 20100717
  Receipt Date: 20071101
  Transmission Date: 20110219
  Serious: No
  Sender: FDA-Public Use
  Company Number: US-PFIZER INC-2007093297

PATIENT
  Sex: Male
  Weight: 95.3 kg

DRUGS (4)
  1. CHANTIX [Suspect]
     Indication: SMOKING CESSATION THERAPY
     Route: 048
     Dates: start: 20070101
  2. AMOXICILLIN [Concomitant]
     Indication: LUNG INFECTION
     Dates: start: 20070101
  3. AMOXICILLIN [Concomitant]
     Indication: OROPHARYNGEAL PAIN
  4. VITAMINS [Concomitant]

REACTIONS (2)
  - COUGH [None]
  - OROPHARYNGEAL PAIN [None]
